FAERS Safety Report 19848290 (Version 4)
Quarter: 2021Q4

REPORT INFORMATION
  Report Type: Report from Study
  Country: US (occurrence: US)
  Receive Date: 20210918
  Receipt Date: 20211123
  Transmission Date: 20220303
  Serious: No
  Sender: FDA-Public Use
  Company Number: NVSC2021US211860

PATIENT
  Sex: Male

DRUGS (1)
  1. ENTRESTO [Suspect]
     Active Substance: SACUBITRIL\VALSARTAN
     Indication: Product used for unknown indication
     Dosage: UNK UNK, BID
     Route: 048
     Dates: start: 202109

REACTIONS (5)
  - Insomnia [Unknown]
  - Joint stiffness [Recovered/Resolved]
  - Rhinorrhoea [Unknown]
  - Fatigue [Unknown]
  - Product dose omission issue [Unknown]
